FAERS Safety Report 5402388-1 (Version None)
Quarter: 2007Q3

REPORT INFORMATION
  Report Type: 
  Country: None (occurrence: None)
  Receive Date: 20070730
  Receipt Date: 20070730
  Transmission Date: 20080115
  Serious: Yes (Hospitalization)
  Sender: FDA-Public Use
  Company Number: None

PATIENT
  Age: 87 Year
  Sex: Male

DRUGS (2)
  1. CARVEDILOL [Suspect]
     Indication: CARDIAC FAILURE CONGESTIVE
     Dosage: 50MG BID PO
     Route: 048
     Dates: start: 20070601
  2. FELODIPINE [Suspect]
     Dosage: 5MG EVERY DAY PO
     Route: 048
     Dates: start: 20070221, end: 20070614

REACTIONS (2)
  - ATRIOVENTRICULAR BLOCK SECOND DEGREE [None]
  - NODAL RHYTHM [None]
